FAERS Safety Report 9742694 (Version 2)
Quarter: 2015Q3

REPORT INFORMATION
  Report Type: Spontaneous
  Country: US (occurrence: US)
  Receive Date: 20131210
  Receipt Date: 20150805
  Transmission Date: 20151125
  Serious: No
  Sender: FDA-Public Use
  Company Number: US-GILEAD-2009-0025717

PATIENT
  Age: 53 Year
  Sex: Male
  Weight: 81.65 kg

DRUGS (11)
  1. INDERAL [Concomitant]
     Active Substance: PROPRANOLOL HYDROCHLORIDE
  2. LETAIRIS [Suspect]
     Active Substance: AMBRISENTAN
     Indication: PULMONARY ARTERIAL HYPERTENSION
     Route: 048
     Dates: start: 20080805
  3. PREVACID [Concomitant]
     Active Substance: LANSOPRAZOLE
  4. REVATIO [Concomitant]
     Active Substance: SILDENAFIL CITRATE
  5. MILK THISTLE [Concomitant]
     Active Substance: MILK THISTLE
  6. COENZYME Q10 [Concomitant]
     Active Substance: UBIDECARENONE
  7. FUROSEMIDE. [Concomitant]
     Active Substance: FUROSEMIDE
  8. FOLIC ACID. [Concomitant]
     Active Substance: FOLIC ACID
  9. SELENIUM [Concomitant]
     Active Substance: SELENIUM
  10. MULTIVITAMIN [Concomitant]
     Active Substance: VITAMINS
  11. VITAMIN B12 [Concomitant]
     Active Substance: CYANOCOBALAMIN

REACTIONS (1)
  - Pancreatitis [Unknown]
